FAERS Safety Report 4621052-X (Version None)
Quarter: 2005Q1

REPORT INFORMATION
  Report Type: 
  Country: None (occurrence: None)
  Receive Date: 20050325
  Receipt Date: 20050315
  Transmission Date: 20050727
  Serious: Yes (Death, Hospitalization, Other)
  Sender: FDA-Public Use
  Company Number: 2005039011

PATIENT
  Age: 82 Year
  Sex: Female

DRUGS (23)
  1. LIPITOR [Suspect]
     Indication: HYPERLIPIDAEMIA
     Dosage: 5 MG (1 IN 1 D), ORAL
     Route: 048
     Dates: start: 20030418, end: 20050217
  2. LANSOPRAZOLE [Concomitant]
  3. FUROSEMIDE [Concomitant]
  4. SINEMET [Concomitant]
  5. SENNOSIDE A+B (SENNOSIDE A+B) [Concomitant]
  6. VOGLIBOSE (VOGLIBOSE) [Concomitant]
  7. LOSARTAN POTASSIUM [Concomitant]
  8. ISOSORBIDE DINITRATE [Concomitant]
  9. FLAVINE ADENINE DINUCLEOTIDE [Concomitant]
  10. SINEMET [Concomitant]
  11. SENNA LEAF (SENNA LEAF) [Concomitant]
  12. ACTIT (MAGENSIUM CHLORIDE ANHYDROUS, MALTOSE, POTASSIUM CHLORIDE, POTA [Concomitant]
  13. GLYCYRRHIZIC ACID, AMMONIUM SALT (GLYCYRRHIZIC ACID, AMMONIUM SALT) [Concomitant]
  14. FUROSEMIDE [Concomitant]
  15. TULOBUTEROL HYDROCHLORIDE (TULOBUTEROL HYDROCHLORIDE) [Concomitant]
  16. AMINOPHYLLIN [Concomitant]
  17. SODIUM BICARBONATE IN PLASTIC CONTAINER [Concomitant]
  18. INSULIN HUMAN (INSULIN HUMAN) [Concomitant]
  19. TIENAM (CILASTATIN, IMIPENEM) [Concomitant]
  20. METOCLOPRAMIDE [Concomitant]
  21. PANTHENOL (PANTHENOL) [Concomitant]
  22. DESLANOSIDE (DESLANOSIDE) [Concomitant]
  23. METHYLPREDNISOLONE [Concomitant]

REACTIONS (11)
  - ACIDOSIS [None]
  - ACUTE MYOCARDIAL INFARCTION [None]
  - ASPIRATION [None]
  - CARDIAC FAILURE [None]
  - CARDIO-RESPIRATORY ARREST [None]
  - PNEUMONIA [None]
  - PNEUMONIA ASPIRATION [None]
  - RENAL FAILURE ACUTE [None]
  - RHABDOMYOLYSIS [None]
  - STRIDOR [None]
  - VOMITING [None]
